FAERS Safety Report 9399927 (Version 1)
Quarter: 2013Q3

REPORT INFORMATION
  Report Type: Spontaneous
  Country: US (occurrence: None)
  Receive Date: 20130710
  Receipt Date: 20130710
  Transmission Date: 20140515
  Serious: Yes (Death)
  Sender: FDA-Public Use
  Company Number: SYM-2013-05410

PATIENT
  Age: 78 Year
  Sex: Female

DRUGS (6)
  1. XENAZINE (TETRABENAZINE) (12.5 MILLIGRAM, TABLET) (TETRABENAZINE) [Suspect]
     Indication: PRODUCT USED FOR UNKNOWN INDICATION
     Dosage: 2 IN 1 D, ORAL
     Route: 048
     Dates: start: 20100212, end: 20130613
  2. DETROL [Suspect]
  3. OSCAL [Suspect]
  4. FOSAMAX [Concomitant]
  5. BACLOFEN (BACLOFEN) (BACLOFEN) [Concomitant]
  6. EFFEXOR [Concomitant]

REACTIONS (1)
  - Death [None]
